FAERS Safety Report 8984343 (Version 1)
Quarter: 2012Q4

REPORT INFORMATION
  Report Type: 
  Country: GB (occurrence: GB)
  Receive Date: 20121225
  Receipt Date: 20121225
  Transmission Date: 20130627
  Serious: Yes (Other)
  Sender: FDA-Public Use
  Company Number: GB-009507513-1212GBR009606

PATIENT
  Age: 37 Year
  Sex: Male
  Weight: 76.2 kg

DRUGS (3)
  1. MIRTAZAPINE [Suspect]
     Indication: ANXIETY
     Dosage: 15 mg, UNK
     Route: 048
     Dates: start: 20121206
  2. MIRTAZAPINE [Suspect]
     Indication: DEPRESSION
  3. SERTRALINE HYDROCHLORIDE [Concomitant]

REACTIONS (2)
  - Anger [Not Recovered/Not Resolved]
  - Irritability [Not Recovered/Not Resolved]
